FAERS Safety Report 6149510-X (Version None)
Quarter: 2009Q2

REPORT INFORMATION
  Report Type: 
  Country: None (occurrence: None)
  Receive Date: 20090409
  Receipt Date: 20090402
  Transmission Date: 20091009
  Serious: Yes (Death, Life-Threatening)
  Sender: FDA-Public Use
  Company Number: JP-BAYER-200911004BYL

PATIENT
  Age: 36 Year
  Sex: Female
  Weight: 44 kg

DRUGS (10)
  1. FLUDARA [Suspect]
     Indication: ACUTE MYELOID LEUKAEMIA
     Dosage: AS USED: 40 MG  UNIT DOSE: 50 MG
     Route: 042
     Dates: start: 20080612, end: 20080617
  2. BUSULFAN [Concomitant]
     Indication: STEM CELL TRANSPLANT
     Route: 042
     Dates: start: 20080617, end: 20080620
  3. CYTARABINE [Concomitant]
     Indication: ACUTE MYELOID LEUKAEMIA
     Route: 042
     Dates: start: 20080612, end: 20080615
  4. CYCLOSPORINE [Concomitant]
     Route: 065
     Dates: start: 20080619, end: 20080725
  5. METHOTREXATE [Concomitant]
     Route: 065
     Dates: start: 20080625, end: 20080625
  6. METHOTREXATE [Concomitant]
     Route: 065
     Dates: start: 20080630, end: 20080630
  7. METHOTREXATE [Concomitant]
     Route: 065
     Dates: start: 20080627, end: 20080627
  8. STRONG NEO-MINOPHAGEN C [Concomitant]
     Route: 042
     Dates: start: 20080611, end: 20080726
  9. STRONG NEO-MINOPHAGEN C [Concomitant]
     Route: 042
     Dates: start: 20080627, end: 20080728
  10. NEUPOGEN [Concomitant]
     Route: 065
     Dates: start: 20080629, end: 20080727

REACTIONS (2)
  - JAUNDICE [None]
  - SEPSIS [None]
